FAERS Safety Report 21109109 (Version 10)
Quarter: 2024Q1

REPORT INFORMATION
  Report Type: Report from Study
  Country: US (occurrence: US)
  Receive Date: 20220721
  Receipt Date: 20240322
  Transmission Date: 20240409
  Serious: No
  Sender: FDA-Public Use
  Company Number: US-NOVARTISTESTPH-NVSC2022US164718

PATIENT
  Age: 49 Year
  Sex: Female

DRUGS (3)
  1. COSENTYX [Suspect]
     Active Substance: SECUKINUMAB
     Indication: Psoriatic arthropathy
     Dosage: 300 MG, QMO
     Route: 058
  2. COSENTYX [Suspect]
     Active Substance: SECUKINUMAB
     Indication: Psoriasis
     Dosage: 300 MG (ONE SINGLE DOSE)
     Route: 030
     Dates: start: 20220513
  3. COSENTYX [Suspect]
     Active Substance: SECUKINUMAB
     Dosage: 300 MG, Q4W (COSENTYX SENSOREADY PEN 150MG, INJECT 2 PENS (300MG) EVERY 4 WEEKS)
     Route: 058
     Dates: start: 20220527, end: 20221111

REACTIONS (14)
  - Memory impairment [Unknown]
  - Concomitant disease aggravated [Unknown]
  - Dry mouth [Unknown]
  - Lip ulceration [Unknown]
  - Tongue ulceration [Unknown]
  - Dry skin [Unknown]
  - Rash macular [Unknown]
  - Product use issue [Not Recovered/Not Resolved]
  - Pruritus [Unknown]
  - Peripheral swelling [Unknown]
  - Inflammation [Unknown]
  - Illness [Unknown]
  - Incorrect route of product administration [Unknown]
  - Therapeutic product effect incomplete [Unknown]

NARRATIVE: CASE EVENT DATE: 20221111
